FAERS Safety Report 9332811 (Version 1)
Quarter: 2013Q2

REPORT INFORMATION
  Report Type: Spontaneous
  Country: US (occurrence: US)
  Receive Date: 20130606
  Receipt Date: 20130606
  Transmission Date: 20140414
  Serious: Yes (Hospitalization, Other)
  Sender: FDA-Public Use
  Company Number: US-PFIZER INC-2013168765

PATIENT
  Age: 62 Year
  Sex: Male
  Weight: 99.77 kg

DRUGS (8)
  1. LYRICA [Suspect]
     Indication: RHEUMATOID ARTHRITIS
     Dosage: 50 MG, 3X/DAY
     Dates: start: 2010, end: 201304
  2. LYRICA [Suspect]
     Indication: GUILLAIN-BARRE SYNDROME
     Dosage: 50 MG, 1X/DAY
     Dates: start: 201304, end: 201305
  3. LISINOPRIL [Suspect]
     Indication: HYPERTENSION
     Dosage: 40MG DAILY
     Dates: start: 1995
  4. MORPHINE SULFATE [Suspect]
     Indication: NEURALGIA
     Dosage: 10 MG, 3X/DAY
     Dates: start: 201305, end: 201305
  5. TYLENOL [Suspect]
     Indication: NEURALGIA
     Dosage: UNK
     Dates: start: 201305, end: 201305
  6. HYDROCHLOROTHIAZIDE [Concomitant]
     Indication: DIURETIC THERAPY
     Dosage: UNK,1X/DAY
     Dates: start: 1995
  7. PREDNISONE [Concomitant]
     Indication: RHEUMATOID ARTHRITIS
     Dosage: 20 MG, 2X/DAY
     Dates: start: 2010
  8. CYCLOBENZAPRINE [Concomitant]
     Indication: MUSCLE RELAXANT THERAPY
     Dosage: 20MG DAILY
     Dates: start: 201207

REACTIONS (9)
  - Intentional drug misuse [Unknown]
  - Off label use [Unknown]
  - Chronic obstructive pulmonary disease [Unknown]
  - Dehydration [Unknown]
  - Hypotension [Unknown]
  - Back pain [Unknown]
  - Neuralgia [Unknown]
  - Abdominal discomfort [Unknown]
  - Drug ineffective [Unknown]
